FAERS Safety Report 18580792 (Version 1)
Quarter: 2020Q4

REPORT INFORMATION
  Report Type: Spontaneous
  Country: US (occurrence: US)
  Receive Date: 20201204
  Receipt Date: 20201204
  Transmission Date: 20210114
  Serious: Yes (Other)
  Sender: FDA-Public Use
  Company Number: NVSC2020US319364

PATIENT
  Sex: Female

DRUGS (1)
  1. MEKINIST [Suspect]
     Active Substance: TRAMETINIB DIMETHYL SULFOXIDE
     Indication: MALIGNANT PERITONEAL NEOPLASM
     Dosage: 1.5 MG, QD
     Route: 048
     Dates: start: 20200826

REACTIONS (3)
  - Malignant neoplasm progression [Unknown]
  - Malignant peritoneal neoplasm [Unknown]
  - Product use in unapproved indication [Unknown]
